FAERS Safety Report 6899014-1 (Version None)
Quarter: 2010Q3

REPORT INFORMATION
  Report Type: 
  Country: None (occurrence: None)
  Receive Date: 20100802
  Receipt Date: 20080226
  Transmission Date: 20110219
  Serious: No
  Sender: FDA-Public Use
  Company Number: US-PFIZER INC-2007097503

PATIENT
  Sex: Male
  Weight: 80.74 kg

DRUGS (3)
  1. LYRICA [Suspect]
     Indication: NEUROPATHY PERIPHERAL
     Dates: start: 20071101
  2. SYNTHROID [Concomitant]
  3. ATENOLOL [Concomitant]

REACTIONS (2)
  - BALANCE DISORDER [None]
  - COUGH [None]
